FAERS Safety Report 20877600 (Version 1)
Quarter: 2022Q2

REPORT INFORMATION
  Report Type: Report from Study
  Country: US (occurrence: US)
  Receive Date: 20220526
  Receipt Date: 20220526
  Transmission Date: 20220720
  Serious: Yes (Hospitalization, Other)
  Sender: FDA-Public Use
  Company Number: US-TAKEDA-US202023904

PATIENT
  Age: 44 Year
  Sex: Female
  Weight: 75 kg

DRUGS (10)
  1. TEDUGLUTIDE [Suspect]
     Active Substance: TEDUGLUTIDE
     Indication: Short-bowel syndrome
     Dosage: 3.5 MILLIGRAM, QD
     Route: 042
     Dates: start: 20180401
  2. TEDUGLUTIDE [Suspect]
     Active Substance: TEDUGLUTIDE
     Indication: Short-bowel syndrome
     Dosage: 3.5 MILLIGRAM, QD
     Route: 042
     Dates: start: 20180401
  3. TEDUGLUTIDE [Suspect]
     Active Substance: TEDUGLUTIDE
     Indication: Short-bowel syndrome
     Dosage: 3.5 MILLIGRAM, QD
     Route: 042
     Dates: start: 20180401
  4. TEDUGLUTIDE [Suspect]
     Active Substance: TEDUGLUTIDE
     Indication: Short-bowel syndrome
     Dosage: 3.5 MILLIGRAM, QD
     Route: 042
     Dates: start: 20180401
  5. XARELTO [Concomitant]
     Active Substance: RIVAROXABAN
     Indication: Atrial thrombosis
  6. XARELTO [Concomitant]
     Active Substance: RIVAROXABAN
     Indication: Thrombosis prophylaxis
  7. HYDROMORPHONE [Concomitant]
     Active Substance: HYDROMORPHONE
     Indication: Colitis
     Dosage: 1 MILLIGRAM
     Route: 042
     Dates: start: 20201221, end: 20201221
  8. HYDROMORPHONE [Concomitant]
     Active Substance: HYDROMORPHONE
     Indication: Abdominal pain
     Dosage: 99 MILLIGRAM
     Route: 042
     Dates: start: 20210211, end: 20210504
  9. AMBIEN [Concomitant]
     Active Substance: ZOLPIDEM TARTRATE
     Indication: Insomnia
     Dosage: 5 MILLIGRAM, QD
     Route: 048
     Dates: start: 20210311, end: 20210504
  10. NARCAN [Concomitant]
     Active Substance: NALOXONE HYDROCHLORIDE
     Indication: Encephalopathy
     Dosage: 0.40 MILLIGRAM
     Route: 042
     Dates: start: 20201115, end: 20201115

REACTIONS (1)
  - Staphylococcal bacteraemia [Recovered/Resolved]

NARRATIVE: CASE EVENT DATE: 20200722
